FAERS Safety Report 20422634 (Version 1)
Quarter: 2022Q1

REPORT INFORMATION
  Report Type: Spontaneous
  Country: US (occurrence: US)
  Receive Date: 20220203
  Receipt Date: 20220203
  Transmission Date: 20220423
  Serious: No
  Sender: FDA-Public Use
  Company Number: US-BIOVITRUM-2021US11972

PATIENT
  Sex: Male
  Weight: 10 kg

DRUGS (6)
  1. SYNAGIS [Suspect]
     Active Substance: PALIVIZUMAB
     Indication: Premature baby
     Dosage: SYNAGIS 50MG/0.5ML VL LIQUID
     Route: 030
     Dates: start: 202011
  2. SYNAGIS [Suspect]
     Active Substance: PALIVIZUMAB
     Indication: Low birth weight baby
  3. SYNAGIS [Suspect]
     Active Substance: PALIVIZUMAB
     Indication: Fallot^s tetralogy
  4. SYNAGIS [Suspect]
     Active Substance: PALIVIZUMAB
     Indication: Cleft lip and palate
  5. SYNAGIS [Suspect]
     Active Substance: PALIVIZUMAB
     Indication: Antiviral prophylaxis
  6. VITAMIN D3 10(400)/ML DROPS [Concomitant]

REACTIONS (1)
  - Post procedural infection [Unknown]
